FAERS Safety Report 20199527 (Version 1)
Quarter: 2021Q4

REPORT INFORMATION
  Report Type: Spontaneous
  Country: US (occurrence: US)
  Receive Date: 20211217
  Receipt Date: 20211217
  Transmission Date: 20220303
  Serious: No
  Sender: FDA-Public Use
  Company Number: US-PACIRA-2021000298

PATIENT
  Sex: Male
  Weight: 77 kg

DRUGS (3)
  1. EXPAREL [Suspect]
     Active Substance: BUPIVACAINE
     Dosage: 10 ML WITH 10 ML OF BUPIVACAINE
     Route: 065
     Dates: start: 20210518, end: 20210518
  2. MARCAINE [Suspect]
     Active Substance: BUPIVACAINE HYDROCHLORIDE
     Dosage: 14 CC MARCAINE 0,5%  + 1:200,000 EPINEPHRINE WITH 10 ML OF EXPAREL
     Route: 065
  3. EPINEPHRINE [Suspect]
     Active Substance: EPINEPHRINE
     Dosage: 14 CC MARCAINE 0,5%  + 1:200,000 EPINEPHRINE
     Route: 065

REACTIONS (3)
  - Ecchymosis [Recovered/Resolved]
  - Swelling [Recovered/Resolved]
  - Labelled drug-drug interaction medication error [Unknown]
